FAERS Safety Report 19189446 (Version 1)
Quarter: 2021Q2

REPORT INFORMATION
  Report Type: Spontaneous
  Country: US (occurrence: US)
  Receive Date: 20210428
  Receipt Date: 20210428
  Transmission Date: 20210717
  Serious: Yes (Disabling)
  Sender: FDA-Public Use
  Company Number: None

PATIENT
  Age: 75 Year
  Sex: Female
  Weight: 45 kg

DRUGS (7)
  1. TIROSINT [Suspect]
     Active Substance: LEVOTHYROXINE SODIUM
     Indication: HYPOTHYROIDISM
     Dosage: ?          QUANTITY:30 CAPSULE(S);?
     Route: 048
  2. BUPROPION XL [Concomitant]
     Active Substance: BUPROPION
  3. VITAMIN B12 [Concomitant]
     Active Substance: CYANOCOBALAMIN
  4. JANSSEN COVID?19 VACCINE [Suspect]
     Active Substance: AD26.COV2.S
  5. SYNTHROID TOPROL XL [Concomitant]
  6. FOLATE [Concomitant]
     Active Substance: FOLATE SODIUM
  7. PROLIA [Concomitant]
     Active Substance: DENOSUMAB

REACTIONS (4)
  - Diarrhoea [None]
  - Drug intolerance [None]
  - Abdominal pain [None]
  - COVID-19 immunisation [None]

NARRATIVE: CASE EVENT DATE: 20210216
